FAERS Safety Report 18394470 (Version 2)
Quarter: 2020Q4

REPORT INFORMATION
  Report Type: Spontaneous
  Country: US (occurrence: US)
  Receive Date: 20201016
  Receipt Date: 20201023
  Transmission Date: 20210114
  Serious: Yes (Other)
  Sender: FDA-Public Use
  Company Number: US-MYLANLABS-2020M1085630

PATIENT
  Sex: Female

DRUGS (3)
  1. ESTRADIOL VAGINAL CREAM USP [Suspect]
     Active Substance: ESTRADIOL
     Indication: ATROPHIC VULVOVAGINITIS
     Dosage: UNK, LOWEST DOSE
     Route: 065
     Dates: start: 2019, end: 2019
  2. PREMARIN [Suspect]
     Active Substance: ESTROGENS, CONJUGATED
     Indication: ATROPHIC VULVOVAGINITIS
     Dosage: ONE DOSE
     Route: 067
     Dates: start: 201905, end: 201905
  3. MACROBID [Concomitant]
     Active Substance: NITROFURANTOIN\NITROFURANTOIN MONOHYDRATE
     Indication: PROPHYLAXIS
     Dosage: UNK

REACTIONS (11)
  - Cognitive disorder [Unknown]
  - Mental status changes [Recovering/Resolving]
  - Anxiety [Unknown]
  - Epistaxis [Unknown]
  - Balance disorder [Unknown]
  - Tremor [Unknown]
  - Dysstasia [Unknown]
  - Blood pressure increased [Recovering/Resolving]
  - Nervousness [Unknown]
  - Gait disturbance [Unknown]
  - Dyspnoea [Unknown]

NARRATIVE: CASE EVENT DATE: 2019
